FAERS Safety Report 6076846-3 (Version None)
Quarter: 2009Q2

REPORT INFORMATION
  Report Type: 
  Country: None (occurrence: None)
  Receive Date: 20090211
  Receipt Date: 20090127
  Transmission Date: 20091009
  Serious: Yes (Hospitalization, Other)
  Sender: FDA-Public Use
  Company Number: 230208K09USA

PATIENT
  Age: 57 Year
  Sex: Female
  Weight: 51 kg

DRUGS (5)
  1. REBIF [Suspect]
     Indication: MULTIPLE SCLEROSIS
     Dosage: 44 MCG, 3 IN 1 WEEKS, SUBCUTANEOUS, 44 MCG, 3 IN 1 WEEKS, SUBCUTANEOUS
     Route: 058
     Dates: start: 20080512, end: 20081201
  2. REBIF [Suspect]
     Indication: MULTIPLE SCLEROSIS
     Dosage: 44 MCG, 3 IN 1 WEEKS, SUBCUTANEOUS, 44 MCG, 3 IN 1 WEEKS, SUBCUTANEOUS
     Route: 058
     Dates: start: 20090105
  3. TRAZODONE HCL [Concomitant]
  4. PROVIGIL [Concomitant]
  5. PROZAC [Concomitant]

REACTIONS (3)
  - CROHN'S DISEASE [None]
  - GASTROINTESTINAL NEOPLASM [None]
  - NEOPLASM OF APPENDIX [None]
